FAERS Safety Report 8479796-8 (Version None)
Quarter: 2012Q2

REPORT INFORMATION
  Report Type: 
  Country: None (occurrence: None)
  Receive Date: 20120629
  Receipt Date: 20120619
  Transmission Date: 20120825
  Serious: Yes (Other)
  Sender: FDA-Public Use
  Company Number: US-ABBOTT-12P-163-0947903-00

PATIENT
  Age: 37 Year
  Sex: Female

DRUGS (1)
  1. HUMIRA [Suspect]
     Indication: CROHN'S DISEASE

REACTIONS (9)
  - ABDOMINAL PAIN UPPER [None]
  - STAPHYLOCOCCAL INFECTION [None]
  - SKIN MASS [None]
  - SKIN FISSURES [None]
  - NODULE [None]
  - DYSPEPSIA [None]
  - ECZEMA [None]
  - PURULENT DISCHARGE [None]
  - DERMATITIS INFECTED [None]
